FAERS Safety Report 6687625-8 (Version None)
Quarter: 2010Q2

REPORT INFORMATION
  Report Type: 
  Country: None (occurrence: None)
  Receive Date: 20100414
  Receipt Date: 20100330
  Transmission Date: 20101027
  Serious: Yes (Hospitalization)
  Sender: FDA-Public Use
  Company Number: 2010000880

PATIENT
  Age: 57 Year
  Sex: Male

DRUGS (4)
  1. ERLOTINIB [Suspect]
     Indication: PANCREATIC CARCINOMA
     Dosage: (QD), ORAL
     Route: 048
     Dates: start: 20091127, end: 20100312
  2. TRAMADOL HCL [Concomitant]
  3. KREON (PANCREATIN) [Concomitant]
  4. INSULATARD NPH HUMAN [Concomitant]

REACTIONS (1)
  - CHOLANGITIS ACUTE [None]
